FAERS Safety Report 6457662-7 (Version None)
Quarter: 2009Q4

REPORT INFORMATION
  Report Type: 
  Country: None (occurrence: None)
  Receive Date: 20091120
  Receipt Date: 20091112
  Transmission Date: 20100525
  Serious: Yes (Other)
  Sender: FDA-Public Use
  Company Number: 2009EU004304

PATIENT
  Sex: 0

DRUGS (2)
  1. TACROLIMUS [Suspect]
     Indication: ACUTE GRAFT VERSUS HOST DISEASE
  2. RAPAMYCIN (SIROLIMUS) [Suspect]
     Indication: ACUTE GRAFT VERSUS HOST DISEASE
     Dosage: D, ORAL
     Route: 048

REACTIONS (1)
  - THROMBOTIC MICROANGIOPATHY [None]
